FAERS Safety Report 11381082 (Version 1)
Quarter: 2015Q3

REPORT INFORMATION
  Report Type: Report from Study
  Country: US (occurrence: US)
  Receive Date: 20150814
  Receipt Date: 20150814
  Transmission Date: 20151125
  Serious: No
  Sender: FDA-Public Use
  Company Number: US-CELGENEUS-USA-2015074124

PATIENT

DRUGS (8)
  1. THALOMID [Suspect]
     Active Substance: THALIDOMIDE
     Route: 048
  2. THALOMID [Suspect]
     Active Substance: THALIDOMIDE
     Dosage: 2 MILLIGRAM
     Route: 048
  3. THALOMID [Suspect]
     Active Substance: THALIDOMIDE
     Indication: PLASMA CELL MYELOMA
     Route: 048
  4. THALOMID [Suspect]
     Active Substance: THALIDOMIDE
     Route: 048
  5. THALOMID [Suspect]
     Active Substance: THALIDOMIDE
     Route: 048
  6. THALOMID [Suspect]
     Active Substance: THALIDOMIDE
     Route: 048
  7. THALOMID [Suspect]
     Active Substance: THALIDOMIDE
     Route: 048
  8. THALOMID [Suspect]
     Active Substance: THALIDOMIDE
     Route: 048

REACTIONS (2)
  - Hypoaesthesia [Unknown]
  - Feeling abnormal [Recovering/Resolving]
